FAERS Safety Report 5305784-6 (Version None)
Quarter: 2007Q2

REPORT INFORMATION
  Report Type: 
  Country: None (occurrence: None)
  Receive Date: 20070420
  Receipt Date: 20070420
  Transmission Date: 20071010
  Serious: No
  Sender: FDA-Public Use
  Company Number: None

PATIENT
  Sex: Male
  Weight: 82.1011 kg

DRUGS (5)
  1. DURAGESIC-25 [Suspect]
     Indication: BACK PAIN
     Dosage: 25U UG/H   ONCE A NIGHT   TRANSDERMAL
     Route: 062
     Dates: start: 19981121, end: 20040816
  2. DURAGESIC-25 [Suspect]
     Indication: WOUND
     Dosage: 25U UG/H   ONCE A NIGHT   TRANSDERMAL
     Route: 062
     Dates: start: 19981121, end: 20040816
  3. DURAGESIC-25 [Suspect]
     Indication: BACK PAIN
     Dosage: 25U UG/H   ONCE A NIGHT   TRANSDERMAL
     Route: 062
     Dates: start: 20040910, end: 20070419
  4. DURAGESIC-25 [Suspect]
     Indication: WOUND
     Dosage: 25U UG/H   ONCE A NIGHT   TRANSDERMAL
     Route: 062
     Dates: start: 20040910, end: 20070419
  5. DURAGESIC-25 [Suspect]

REACTIONS (1)
  - UNEVALUABLE EVENT [None]
